FAERS Safety Report 10486041 (Version 1)
Quarter: 2014Q3

REPORT INFORMATION
  Report Type: Spontaneous
  Country: US (occurrence: None)
  Receive Date: 20140929
  Receipt Date: 20140929
  Transmission Date: 20150326
  Serious: Yes (Other)
  Sender: FDA-Public Use
  Company Number: 2014COV00120

PATIENT
  Sex: Male

DRUGS (3)
  1. HYDROXYCHLOROQUINE [Suspect]
     Active Substance: HYDROXYCHLOROQUINE
     Indication: PROSTATE CANCER
     Dosage: DAY
     Route: 048
  2. TEMOSIROLIMUS [Suspect]
     Active Substance: TEMSIROLIMUS
     Indication: PROSTATE CANCER
     Dosage: DAY
     Route: 042
  3. DIPHENDYDRAMINE (DIPHENDYDRAMINE) [Concomitant]

REACTIONS (2)
  - Thrombocytopenia [None]
  - Cerebrovascular accident [None]
